FAERS Safety Report 6379002-4 (Version None)
Quarter: 2009Q3

REPORT INFORMATION
  Report Type: 
  Country: None (occurrence: None)
  Receive Date: 20090928
  Receipt Date: 20090916
  Transmission Date: 20100115
  Serious: Yes (Other)
  Sender: FDA-Public Use
  Company Number: PHEH2006US03610

PATIENT
  Sex: Female
  Weight: 79.365 kg

DRUGS (6)
  1. AREDIA [Suspect]
  2. ZOMETA [Suspect]
     Indication: METASTASES TO BONE
     Dosage: 4 MG MONTHLY
     Dates: start: 20030718, end: 20051201
  3. ZOMETA [Suspect]
     Dosage: 2 MG EVERY 3 WEEKS
     Dates: start: 20060526
  4. FEMARA [Concomitant]
     Indication: BREAST CANCER
     Dosage: 2.5 MG, QD
     Route: 048
  5. FASLODEX [Concomitant]
  6. XELODA [Concomitant]
     Indication: BREAST CANCER
     Dosage: UNK, BID
     Route: 048

REACTIONS (41)
  - ALVEOLAR OSTEITIS [None]
  - AMNESIA [None]
  - ANHEDONIA [None]
  - ANXIETY [None]
  - BLOOD CALCIUM INCREASED [None]
  - BONE DEBRIDEMENT [None]
  - BONE DISORDER [None]
  - BREAST CANCER [None]
  - CATHETER PLACEMENT [None]
  - CATHETER RELATED COMPLICATION [None]
  - CYST [None]
  - DEBRIDEMENT [None]
  - DEMENTIA [None]
  - DEPRESSION [None]
  - DISEASE PROGRESSION [None]
  - DYSGEUSIA [None]
  - ECONOMIC PROBLEM [None]
  - FACE INJURY [None]
  - FALL [None]
  - GINGIVAL PAIN [None]
  - GINGIVITIS [None]
  - HAEMOGLOBIN DECREASED [None]
  - HYPERCALCAEMIA [None]
  - IMPAIRED HEALING [None]
  - JAW OPERATION [None]
  - KNEE ARTHROPLASTY [None]
  - LOOSE TOOTH [None]
  - MENTAL DISORDER [None]
  - MULTIPLE INJURIES [None]
  - OSTEONECROSIS [None]
  - PAIN [None]
  - PAIN IN JAW [None]
  - PERIODONTAL DISEASE [None]
  - RESORPTION BONE INCREASED [None]
  - SENSITIVITY OF TEETH [None]
  - SINUS DISORDER [None]
  - SWELLING [None]
  - TOOTH EXTRACTION [None]
  - UNEVALUABLE EVENT [None]
  - VENA CAVA INJURY [None]
  - X-RAY [None]
